FAERS Safety Report 6168674-5 (Version None)
Quarter: 2009Q2

REPORT INFORMATION
  Report Type: 
  Country: None (occurrence: None)
  Receive Date: 20090423
  Receipt Date: 20090406
  Transmission Date: 20091009
  Serious: Yes (Other)
  Sender: FDA-Public Use
  Company Number: JPI-P-006914

PATIENT
  Age: 83 Year
  Sex: Male

DRUGS (4)
  1. LUVOX [Suspect]
     Indication: DEPRESSED MOOD
     Dosage: ORAL
     Route: 048
  2. ISONIAZID [Concomitant]
  3. RIFAMPICIN [Concomitant]
  4. ETHAMBUTOL HYDROCHLORIDE [Concomitant]

REACTIONS (1)
  - INAPPROPRIATE ANTIDIURETIC HORMONE SECRETION [None]
